FAERS Safety Report 7482138-8 (Version None)
Quarter: 2011Q2

REPORT INFORMATION
  Report Type: 
  Country: None (occurrence: None)
  Receive Date: 20110516
  Receipt Date: 20110510
  Transmission Date: 20111010
  Serious: Yes (Other)
  Sender: FDA-Public Use
  Company Number: FR-PFIZER INC-2011099440

PATIENT
  Age: 61 Year
  Sex: Female
  Weight: 64 kg

DRUGS (22)
  1. LOVENOX [Concomitant]
     Dosage: UNK
     Dates: start: 20110224
  2. IMODIUM [Concomitant]
     Dosage: 2 MG, 2X/DAY
     Dates: start: 20110315
  3. ALDACTONE [Concomitant]
     Dosage: UNK
  4. GARDENAL ^AVENTIS^ [Concomitant]
     Dosage: UNK
  5. OMEPRAZOLE [Concomitant]
     Dosage: UNK
  6. NEXIUM [Concomitant]
     Dosage: UNK
     Dates: start: 20110224
  7. ONDANSERTRON HYDROCHLORIDE [Concomitant]
     Indication: NAUSEA
     Dosage: 4 MG, 3X/DAY
     Dates: start: 20110224
  8. GAVISCON [Concomitant]
     Dosage: UNK
     Dates: start: 20110309
  9. PIPERACILLIN AND TAZOBACTAM [Suspect]
     Indication: BACTERAEMIA
  10. ACUPAN [Concomitant]
     Dosage: UNK
     Dates: start: 20110224
  11. LOVENOX [Concomitant]
     Dosage: 4000 IU, 2X/DAY
     Dates: start: 20110226
  12. VANCOMYCIN [Suspect]
     Dosage: 1 G, 2X/DAY
     Route: 042
     Dates: start: 20110301, end: 20110317
  13. EFFEXOR [Concomitant]
     Dosage: UNK
  14. MORPHINE [Concomitant]
     Dosage: 1 MG, 1X/DAY
     Route: 058
     Dates: start: 20110226
  15. PRIMPERAN TAB [Concomitant]
     Dosage: UNK
     Dates: start: 20110226
  16. TRAMADOL HCL [Concomitant]
     Dosage: 100 MG, 1X/DAY
     Dates: start: 20110315
  17. PIPERACILLIN AND TAZOBACTAM [Suspect]
     Indication: LARGE INTESTINE PERFORATION
     Dosage: 4 G, 3X/DAY
     Route: 042
     Dates: start: 20110224, end: 20110317
  18. ATENOLOL [Concomitant]
     Dosage: UNK
  19. DOMPERIDONE [Concomitant]
     Dosage: UNK
     Dates: start: 20110226
  20. BECILAN [Concomitant]
     Dosage: 1 DF, 1X/DAY
     Dates: start: 20110226
  21. BENERVA [Concomitant]
     Dosage: 1 DF, 1X/DAY
     Dates: start: 20110226
  22. PARACETAMOL [Concomitant]
     Dosage: 1 G, 4X/DAY
     Dates: start: 20110224

REACTIONS (3)
  - RASH MACULAR [None]
  - XEROSIS [None]
  - PRURITUS [None]
